FAERS Safety Report 10575940 (Version 4)
Quarter: 2015Q1

REPORT INFORMATION
  Report Type: Report from Study
  Country: CN (occurrence: CN)
  Receive Date: 20141111
  Receipt Date: 20150121
  Transmission Date: 20150720
  Serious: Yes (Hospitalization)
  Sender: FDA-Public Use
  Company Number: CN-ASTELLAS-2014US017005

PATIENT
  Age: 55 Year
  Sex: Female
  Weight: 58 kg

DRUGS (10)
  1. TACROLIMUS. [Suspect]
     Active Substance: TACROLIMUS
     Indication: RENAL TRANSPLANT
     Dosage: 2-5 MG, TWICE DAILY
     Route: 048
     Dates: start: 20140723
  2. MYCOPHENOLATE MOFETIL. [Suspect]
     Active Substance: MYCOPHENOLATE MOFETIL
     Indication: RENAL TRANSPLANT
     Dosage: 2-4 TABLETS, ONCE DAILY
     Route: 048
     Dates: start: 20140619
  3. ERYTHROPOIETIN HUMAN [Concomitant]
     Indication: ANAEMIA
     Route: 025
     Dates: start: 20140620
  4. NORVASC [Concomitant]
     Active Substance: AMLODIPINE BESYLATE
     Indication: HYPERTENSION
     Route: 048
     Dates: start: 20140624
  5. TARGOCID [Concomitant]
     Active Substance: TEICOPLANIN
     Indication: ANTIBIOTIC PROPHYLAXIS
     Route: 042
     Dates: start: 20140706, end: 20140820
  6. OMEPRAZOLE. [Concomitant]
     Active Substance: OMEPRAZOLE
     Indication: PROPHYLAXIS
     Route: 048
     Dates: start: 20140619
  7. GLUCOTROL [Concomitant]
     Active Substance: GLIPIZIDE
     Indication: BLOOD GLUCOSE ABNORMAL
     Route: 048
     Dates: start: 20140727
  8. ATG-FRESENIUS [Suspect]
     Active Substance: LAPINE T-LYMPHOCYTE IMMUNE GLOBULIN
     Indication: RENAL TRANSPLANT
     Route: 042
     Dates: start: 20140619, end: 20140623
  9. PREDNISONE. [Suspect]
     Active Substance: PREDNISONE
     Indication: RENAL TRANSPLANT
     Dosage: 5-40 MG, ONCE DAILY
     Route: 048
     Dates: start: 20140625
  10. SMZ (CO) [Concomitant]
     Indication: PROPHYLAXIS
     Dosage: 0.48 G, TWICE DAILY
     Route: 048
     Dates: start: 20140726

REACTIONS (1)
  - Perinephric abscess [Recovering/Resolving]

NARRATIVE: CASE EVENT DATE: 20140826
